FAERS Safety Report 4293111-5 (Version None)
Quarter: 2004Q1

REPORT INFORMATION
  Report Type: 
  Country: None (occurrence: None)
  Receive Date: 20040212
  Receipt Date: 20030213
  Transmission Date: 20041129
  Serious: No
  Sender: FDA-Public Use
  Company Number: US-GLAXOSMITHKLINE-A0396722A

PATIENT
  Age: 49 Year
  Sex: Female

DRUGS (4)
  1. PAXIL [Suspect]
     Indication: IRRITABLE BOWEL SYNDROME
     Route: 048
     Dates: start: 19930101
  2. KLONOPIN [Concomitant]
  3. DARVOCET [Concomitant]
  4. MIRALAX [Concomitant]

REACTIONS (3)
  - DIZZINESS [None]
  - MUSCLE TWITCHING [None]
  - PARAESTHESIA [None]
